FAERS Safety Report 4840215-1 (Version None)
Quarter: 2005Q4

REPORT INFORMATION
  Report Type: 
  Country: None (occurrence: None)
  Receive Date: 20051129
  Receipt Date: 20050929
  Transmission Date: 20060501
  Serious: Yes (Hospitalization, Other)
  Sender: FDA-Public Use
  Company Number: US-MERCK-0510USA00520

PATIENT
  Age: 60 Year
  Sex: Male
  Weight: 80 kg

DRUGS (1)
  1. VIOXX [Suspect]
     Indication: ARTHRITIS
     Route: 048
     Dates: start: 20011126, end: 20020209

REACTIONS (5)
  - ARTHROPATHY [None]
  - BACK DISORDER [None]
  - MYOCARDIAL INFARCTION [None]
  - SHOULDER OPERATION [None]
  - SURGERY [None]
